FAERS Safety Report 8300399-X (Version None)
Quarter: 2012Q2

REPORT INFORMATION
  Report Type: 
  Country: None (occurrence: None)
  Receive Date: 20120420
  Receipt Date: 20120411
  Transmission Date: 20120825
  Serious: Yes (Other)
  Sender: FDA-Public Use
  Company Number: US-JNJFOC-20120405517

PATIENT
  Sex: Male

DRUGS (4)
  1. KLONOPIN [Concomitant]
  2. XARELTO [Suspect]
     Indication: PRODUCT USED FOR UNKNOWN INDICATION
     Route: 048
     Dates: start: 20120101, end: 20120101
  3. PROPRANOLOL [Concomitant]
  4. PERCOCET [Concomitant]

REACTIONS (2)
  - TREMOR [None]
  - MUSCLE SPASMS [None]
